FAERS Safety Report 24373344 (Version 1)
Quarter: 2024Q3

REPORT INFORMATION
  Report Type: Spontaneous
  Country: US (occurrence: None)
  Receive Date: 20240926
  Receipt Date: 20240926
  Transmission Date: 20241017
  Serious: Yes (Other)
  Sender: Public
  Company Number: None

PATIENT
  Age: 32 Year
  Sex: Female

DRUGS (1)
  1. KYLEENA [Suspect]
     Active Substance: LEVONORGESTREL
     Indication: Contraception
     Route: 067

REACTIONS (4)
  - Device dislocation [None]
  - Infection [None]
  - Haemorrhage [None]
  - Complication of device removal [None]

NARRATIVE: CASE EVENT DATE: 20240920
